FAERS Safety Report 8376876-2 (Version None)
Quarter: 2012Q2

REPORT INFORMATION
  Report Type: 
  Country: None (occurrence: None)
  Receive Date: 20120522
  Receipt Date: 20120510
  Transmission Date: 20120825
  Serious: Yes (Hospitalization)
  Sender: FDA-Public Use
  Company Number: DK-JNJFOC-20120508249

PATIENT
  Sex: Female

DRUGS (4)
  1. REMICADE [Suspect]
     Dosage: STRENGTH: 100 MG
     Route: 042
     Dates: start: 20120419, end: 20120419
  2. UNIKALK FORTE [Concomitant]
     Indication: MEDICAL DIET
     Route: 065
  3. REMICADE [Suspect]
     Indication: COLITIS ULCERATIVE
     Dosage: STRENGTH: 100MG
     Route: 042
  4. PENTASA [Concomitant]
     Indication: COLITIS ULCERATIVE
     Route: 065

REACTIONS (6)
  - PRODUCT CONTAMINATION MICROBIAL [None]
  - ASTHENIA [None]
  - VIRAL INFECTION [None]
  - MYALGIA [None]
  - TRANSMISSION OF AN INFECTIOUS AGENT VIA A MEDICINAL PRODUCT [None]
  - PAIN IN JAW [None]
